FAERS Safety Report 18902492 (Version 1)
Quarter: 2021Q1

REPORT INFORMATION
  Report Type: Spontaneous
  Country: US (occurrence: US)
  Receive Date: 20210217
  Receipt Date: 20210217
  Transmission Date: 20210420
  Serious: No
  Sender: FDA-Public Use
  Company Number: US-GLAXOSMITHKLINE-USCH2021GSK006581

PATIENT
  Sex: Female

DRUGS (4)
  1. IBUPROFEN. [Suspect]
     Active Substance: IBUPROFEN
     Indication: HYPOAESTHESIA
     Dosage: UNK
  2. MOTRIN [Suspect]
     Active Substance: IBUPROFEN
     Indication: HYPOAESTHESIA
  3. MOTRIN [Suspect]
     Active Substance: IBUPROFEN
     Indication: MUSCULAR WEAKNESS
  4. IBUPROFEN. [Suspect]
     Active Substance: IBUPROFEN
     Indication: MUSCULAR WEAKNESS

REACTIONS (1)
  - Product use issue [Unknown]
